FAERS Safety Report 9403218 (Version 1)
Quarter: 2013Q3

REPORT INFORMATION
  Report Type: Spontaneous
  Country: US (occurrence: None)
  Receive Date: 20130715
  Receipt Date: 20130715
  Transmission Date: 20140515
  Serious: Yes (Hospitalization)
  Sender: FDA-Public Use
  Company Number: None

PATIENT
  Age: 77 Year
  Sex: Male
  Weight: 77.3 kg

DRUGS (1)
  1. WARFARIN [Suspect]
     Indication: ATRIAL FIBRILLATION
     Route: 048
     Dates: start: 20130531, end: 20130613

REACTIONS (8)
  - Peptic ulcer [None]
  - Chest pain [None]
  - Iron deficiency anaemia [None]
  - Occult blood positive [None]
  - Abdominal pain upper [None]
  - International normalised ratio increased [None]
  - Drug interaction [None]
  - Gastric haemorrhage [None]
